FAERS Safety Report 4446872-6 (Version None)
Quarter: 2004Q3

REPORT INFORMATION
  Report Type: 
  Country: None (occurrence: None)
  Receive Date: 20040908
  Receipt Date: 20040825
  Transmission Date: 20050211
  Serious: Yes (Congenital Anomaly)
  Sender: FDA-Public Use
  Company Number: 2004230743DE

PATIENT
  Age: 1 Day
  Sex: Female

DRUGS (1)
  1. FRAGMIN [Suspect]

REACTIONS (4)
  - CONGENITAL FOOT MALFORMATION [None]
  - DRUG EXPOSURE DURING PREGNANCY [None]
  - LIMB REDUCTION DEFECT [None]
  - NEONATAL DISORDER [None]
